FAERS Safety Report 8171172-0 (Version None)
Quarter: 2012Q1

REPORT INFORMATION
  Report Type: 
  Country: None (occurrence: None)
  Receive Date: 20120228
  Receipt Date: 20111212
  Transmission Date: 20120608
  Serious: No
  Sender: FDA-Public Use
  Company Number: US-BRISTOL-MYERS SQUIBB COMPANY-16259509

PATIENT
  Age: 48 Year
  Sex: Male

DRUGS (1)
  1. ONGLYZA [Suspect]
     Dosage: FOR 15 MONTHS

REACTIONS (2)
  - ABDOMINAL PAIN [None]
  - COUGH [None]
